FAERS Safety Report 4665167-9 (Version None)
Quarter: 2005Q2

REPORT INFORMATION
  Report Type: 
  Country: None (occurrence: None)
  Receive Date: 20050517
  Receipt Date: 20050504
  Transmission Date: 20051028
  Serious: Yes (Death)
  Sender: FDA-Public Use
  Company Number: 2005070568

PATIENT
  Age: 63 Year
  Sex: Female

DRUGS (5)
  1. ZIPRASIDONE (CAPS)  (ZIPRASIDONE) [Suspect]
     Indication: PSYCHOTIC DISORDER
     Dosage: 120 MG, ORAL
     Route: 048
  2. INSULIN [Concomitant]
  3. ASPIRIN [Concomitant]
  4. LOSARTAN (LOSARTAN) [Concomitant]
  5. CLONAZEPAM [Concomitant]

REACTIONS (2)
  - PULMONARY EMBOLISM [None]
  - SUDDEN DEATH [None]
